FAERS Safety Report 7302739-7 (Version None)
Quarter: 2011Q1

REPORT INFORMATION
  Report Type: 
  Country: None (occurrence: None)
  Receive Date: 20110218
  Receipt Date: 20110209
  Transmission Date: 20110831
  Serious: Yes (Death, Other)
  Sender: FDA-Public Use
  Company Number: BE-ABBOTT-09P-013-0601916-00

PATIENT
  Sex: Female
  Weight: 84 kg

DRUGS (14)
  1. HUMIRA [Suspect]
     Route: 058
  2. PROZAC [Concomitant]
     Indication: DEPRESSION
     Dates: start: 20020101
  3. HUMIRA [Suspect]
     Indication: CROHN'S DISEASE
     Route: 058
     Dates: start: 20090317, end: 20090317
  4. HUMIRA [Suspect]
     Route: 058
     Dates: end: 20090910
  5. HUMIRA [Concomitant]
     Indication: CROHN'S DISEASE
  6. QVAR 40 [Concomitant]
     Indication: COUGH
     Route: 065
     Dates: start: 20050101
  7. VITAMIN B-12 [Concomitant]
     Indication: VITAMIN SUPPLEMENTATION
     Dates: start: 20000101
  8. VENORUTON [Concomitant]
     Indication: VARICOSE VEIN
     Dates: start: 20080101
  9. OMEPRAZOLE [Concomitant]
     Indication: GASTROOESOPHAGEAL REFLUX DISEASE
     Dates: start: 20060801
  10. FOLIC ACID [Concomitant]
     Indication: VITAMIN SUPPLEMENTATION
     Dates: start: 20000101
  11. MELOXICAM [Concomitant]
     Indication: PRODUCT USED FOR UNKNOWN INDICATION
     Dates: start: 20090417
  12. IMODIUM [Concomitant]
     Indication: DIARRHOEA
     Dates: start: 20070101
  13. ULTRA K [Concomitant]
     Indication: HYPOKALAEMIA
     Dosage: 1 SPOON
     Dates: start: 20000101
  14. PANADEINE CO [Concomitant]
     Indication: PRODUCT USED FOR UNKNOWN INDICATION
     Dates: start: 20081201

REACTIONS (1)
  - OESOPHAGEAL ADENOCARCINOMA [None]
